FAERS Safety Report 14592726 (Version 1)
Quarter: 2018Q1

REPORT INFORMATION
  Report Type: Spontaneous
  Country: FR (occurrence: FR)
  Receive Date: 20180302
  Receipt Date: 20180302
  Transmission Date: 20180509
  Serious: Yes (Hospitalization)
  Sender: FDA-Public Use
  Company Number: FR-BAYER-2018-037443

PATIENT
  Sex: Female
  Weight: 58 kg

DRUGS (1)
  1. MIRENA [Suspect]
     Active Substance: LEVONORGESTREL
     Indication: CONTRACEPTION
     Dosage: 20 MCG/24HR, CONT
     Route: 015

REACTIONS (6)
  - Anxiety [Recovered/Resolved]
  - Breast pain [Recovered/Resolved]
  - Tachycardia [Recovered/Resolved]
  - Migraine [Recovered/Resolved]
  - Ovarian cyst [Recovered/Resolved with Sequelae]
  - Vertigo [Recovered/Resolved]

NARRATIVE: CASE EVENT DATE: 20120101
